FAERS Safety Report 15280032 (Version 1)
Quarter: 2018Q3

REPORT INFORMATION
  Report Type: Spontaneous
  Country: US (occurrence: US)
  Receive Date: 20180730
  Receipt Date: 20180730
  Transmission Date: 20181010
  Serious: No
  Sender: FDA-Public Use
  Company Number: None

PATIENT
  Age: 72 Year
  Sex: Female
  Weight: 59.87 kg

DRUGS (17)
  1. ROSUVASTATIN 5MG [Suspect]
     Active Substance: ROSUVASTATIN
     Indication: HYPERLIPIDAEMIA
     Route: 048
  2. EPLERENONE. [Concomitant]
     Active Substance: EPLERENONE
  3. LEVOTHYROXINE. [Concomitant]
     Active Substance: LEVOTHYROXINE
  4. LINZESS [Concomitant]
     Active Substance: LINACLOTIDE
  5. ROSUVASTATIN 20MG [Suspect]
     Active Substance: ROSUVASTATIN
     Indication: HYPERLIPIDAEMIA
     Route: 048
  6. CRESTOR [Concomitant]
     Active Substance: ROSUVASTATIN CALCIUM
  7. FISH OIL [Concomitant]
     Active Substance: FISH OIL
  8. MULTIVITAMIN [Concomitant]
     Active Substance: VITAMINS
  9. CETIRIZINE [Concomitant]
     Active Substance: CETIRIZINE HYDROCHLORIDE
  10. COLACE [Concomitant]
     Active Substance: DOCUSATE SODIUM
  11. ASPIRIL [Concomitant]
  12. RAMIPRIL. [Concomitant]
     Active Substance: RAMIPRIL
  13. MELATONIN [Concomitant]
     Active Substance: MELATONIN
  14. ROSUVASTATIN 5MG [Suspect]
     Active Substance: ROSUVASTATIN
     Indication: HYPERLIPIDAEMIA
     Route: 048
  15. FLONASE [Concomitant]
     Active Substance: FLUTICASONE PROPIONATE
  16. PROBIOTICS [Concomitant]
     Active Substance: PROBIOTICS NOS
  17. PRESERVISION [Concomitant]
     Active Substance: MINERALS\VITAMINS

REACTIONS (4)
  - Product substitution issue [None]
  - Therapeutic response changed [None]
  - Treatment failure [None]
  - Therapy change [None]

NARRATIVE: CASE EVENT DATE: 20180321
